FAERS Safety Report 6696817-3 (Version None)
Quarter: 2010Q2

REPORT INFORMATION
  Report Type: 
  Country: None (occurrence: None)
  Receive Date: 20100426
  Receipt Date: 20100415
  Transmission Date: 20101027
  Serious: Yes (Hospitalization)
  Sender: FDA-Public Use
  Company Number: GXKR2010IN04297

PATIENT
  Age: 37 Year
  Sex: Male

DRUGS (3)
  1. TRAMADOL (NGX) [Suspect]
     Dosage: 8 DF, TID
  2. IBUPROFEN [Concomitant]
     Indication: INJURY
  3. PIROXICAM [Concomitant]

REACTIONS (20)
  - ABNORMAL BEHAVIOUR [None]
  - ANXIETY [None]
  - DIARRHOEA [None]
  - DRUG ABUSE [None]
  - DRUG WITHDRAWAL SYNDROME [None]
  - EUPHORIC MOOD [None]
  - FATIGUE [None]
  - HEADACHE [None]
  - HYPERHIDROSIS [None]
  - LACRIMATION INCREASED [None]
  - MALAISE [None]
  - MUSCULOSKELETAL STIFFNESS [None]
  - NAUSEA [None]
  - PAIN [None]
  - PSYCHOMOTOR RETARDATION [None]
  - RESTLESSNESS [None]
  - SLEEP DISORDER [None]
  - SNEEZING [None]
  - TREMOR [None]
  - YAWNING [None]
